FAERS Safety Report 12849256 (Version 2)
Quarter: 2016Q4

REPORT INFORMATION
  Report Type: Spontaneous
  Country: US (occurrence: US)
  Receive Date: 20161014
  Receipt Date: 20161020
  Transmission Date: 20170207
  Serious: Yes (Other)
  Sender: FDA-Public Use
  Company Number: US-009507513-1610USA003091

PATIENT
  Age: 30 Year
  Sex: Female
  Weight: 67.12 kg

DRUGS (5)
  1. RISPERDAL CONSTA [Concomitant]
     Active Substance: RISPERIDONE
     Dosage: UNK
  2. DEPAKOTE [Concomitant]
     Active Substance: DIVALPROEX SODIUM
     Dosage: UNK
  3. LITHIUM. [Concomitant]
     Active Substance: LITHIUM
     Dosage: UNK
  4. NEXPLANON [Suspect]
     Active Substance: ETONOGESTREL
     Indication: CONTRACEPTION
     Dosage: ONE IMPLANT, THREE YEARS (IN LEFT ARM)
     Route: 059
     Dates: start: 20150508
  5. HALDOL [Concomitant]
     Active Substance: HALOPERIDOL
     Dosage: UNK

REACTIONS (5)
  - Mental impairment [Unknown]
  - Malaise [Unknown]
  - Device kink [Unknown]
  - Complication associated with device [Unknown]
  - Device breakage [Unknown]

NARRATIVE: CASE EVENT DATE: 2015
